FAERS Safety Report 4509816-4 (Version None)
Quarter: 2004Q4

REPORT INFORMATION
  Report Type: 
  Country: None (occurrence: None)
  Receive Date: 20041124
  Receipt Date: 20040929
  Transmission Date: 20050328
  Serious: No
  Sender: FDA-Public Use
  Company Number: US-BRISTOL-MYERS SQUIBB COMPANY-12719324

PATIENT
  Sex: Female

DRUGS (2)
  1. AVALIDE [Suspect]
     Indication: HYPERTENSION
     Dosage: DOSAGE NOT SPECIFIED
     Route: 048
     Dates: start: 20040901
  2. CONJUGATED ESTROGENS [Concomitant]
     Indication: HORMONE REPLACEMENT THERAPY
     Dosage: TABLET
     Route: 048

REACTIONS (1)
  - DYSGEUSIA [None]
